FAERS Safety Report 9805498 (Version 1)
Quarter: 2014Q1

REPORT INFORMATION
  Report Type: Spontaneous
  Country: US (occurrence: None)
  Receive Date: 20140108
  Receipt Date: 20140108
  Transmission Date: 20141002
  Serious: Yes (Death)
  Sender: FDA-Public Use
  Company Number: None

PATIENT
  Sex: Male

DRUGS (2)
  1. XELODA [Suspect]
     Indication: MALIGNANT ANORECTAL NEOPLASM
     Route: 048
     Dates: start: 20131007, end: 20140106
  2. XELODA [Suspect]
     Route: 048
     Dates: start: 20131007, end: 20140106

REACTIONS (1)
  - Death [None]
